FAERS Safety Report 4347915-0 (Version None)
Quarter: 2004Q2

REPORT INFORMATION
  Report Type: 
  Country: None (occurrence: None)
  Receive Date: 20040422
  Receipt Date: 20040410
  Transmission Date: 20050107
  Serious: Yes (Hospitalization, Other)
  Sender: FDA-Public Use
  Company Number: 2004024707

PATIENT
  Sex: Female
  Weight: 50.3493 kg

DRUGS (11)
  1. NEURONTIN [Suspect]
     Indication: NEURALGIA
     Dosage: 4800 (TID)
     Dates: start: 19940101
  2. LEVOTHYROXINE SODIUM [Concomitant]
  3. NEXIUM [Concomitant]
  4. OXYCODONE HCL [Concomitant]
  5. FLUOXETINE HCL [Concomitant]
  6. LORAZEPAM [Concomitant]
  7. TRAMADOL HCL [Concomitant]
  8. ACETAMINOPHEN [Concomitant]
  9. DIPHENHYDRAMINE HCL [Concomitant]
  10. TIZANIDINE HCL [Concomitant]
  11. ROFECOXIB [Concomitant]

REACTIONS (3)
  - ANAEMIA [None]
  - FIBROMYALGIA [None]
  - MULTIPLE SCLEROSIS [None]
